FAERS Safety Report 15645240 (Version 1)
Quarter: 2018Q4

REPORT INFORMATION
  Report Type: Report from Study
  Country: US (occurrence: US)
  Receive Date: 20181121
  Receipt Date: 20181121
  Transmission Date: 20190205
  Serious: Yes (Other)
  Sender: FDA-Public Use
  Company Number: US-BAYER-2018-212667

PATIENT
  Age: 60 Year
  Sex: Female

DRUGS (2)
  1. STIVARGA [Suspect]
     Active Substance: REGORAFENIB
     Indication: HEPATIC CANCER
     Dosage: DAILY DOSE 80 MG
     Route: 048
     Dates: start: 201811, end: 20181109
  2. STIVARGA [Suspect]
     Active Substance: REGORAFENIB
     Indication: HEPATIC CANCER
     Dosage: DAILY DOSE 120 MG, 3 WEEKS ON AND 1 WEEK OFF
     Route: 048
     Dates: start: 20181110, end: 20181112

REACTIONS (6)
  - Off label use [None]
  - Blister [None]
  - Gait inability [None]
  - Nausea [None]
  - Pre-existing condition improved [None]
  - Diarrhoea [Not Recovered/Not Resolved]

NARRATIVE: CASE EVENT DATE: 201811
